FAERS Safety Report 19744410 (Version 1)
Quarter: 2021Q3

REPORT INFORMATION
  Report Type: Spontaneous
  Country: AU (occurrence: AU)
  Receive Date: 20210823
  Receipt Date: 20210823
  Transmission Date: 20211014
  Serious: Yes (Hospitalization)
  Sender: FDA-Public Use
  Company Number: None

PATIENT

DRUGS (18)
  1. HAWTHORNE [Concomitant]
  2. METFORMIN [Concomitant]
     Active Substance: METFORMIN HYDROCHLORIDE
  3. ATORVASTATIN [Concomitant]
     Active Substance: ATORVASTATIN
  4. EFFIENT [Concomitant]
     Active Substance: PRASUGREL HYDROCHLORIDE
  5. TUMS [Concomitant]
     Active Substance: CALCIUM CARBONATE
  6. NIASPAN [Concomitant]
     Active Substance: NIACIN
  7. DIMETHYL FUM 240 MG [Suspect]
     Active Substance: DIMETHYL FUMARATE
     Indication: MULTIPLE SCLEROSIS
     Route: 048
     Dates: start: 20210306
  8. CALCIFEROL [Concomitant]
  9. METOPROL SUC [Concomitant]
  10. FISH OIL [Concomitant]
     Active Substance: FISH OIL
  11. LIVALO [Concomitant]
     Active Substance: PITAVASTATIN CALCIUM
  12. MYRBETRIQ [Concomitant]
     Active Substance: MIRABEGRON
  13. TOPROL XL [Concomitant]
     Active Substance: METOPROLOL SUCCINATE
  14. ASPIRIN. [Concomitant]
     Active Substance: ASPIRIN
  15. VITAMIN B COMPLEX [Concomitant]
     Active Substance: CYANOCOBALAMIN\DEXPANTHENOL\NIACINAMIDE\PYRIDOXINE HYDROCHLORIDE\RIBOFLAVIN 5^-PHOSPHATE SODIUM\THIAMINE HYDROCHLORIDE\VITAMIN B COMPLEX
  16. OLMESA MEDOX [Concomitant]
  17. PRASUGREL. [Concomitant]
     Active Substance: PRASUGREL
  18. PROVENTIL [Concomitant]
     Active Substance: ALBUTEROL

REACTIONS (2)
  - Hospitalisation [None]
  - Therapy interrupted [None]
